FAERS Safety Report 21994229 (Version 1)
Quarter: 2023Q1

REPORT INFORMATION
  Report Type: Spontaneous
  Country: FR (occurrence: FR)
  Receive Date: 20230215
  Receipt Date: 20230215
  Transmission Date: 20230418
  Serious: Yes (Other)
  Sender: FDA-Public Use
  Company Number: None

PATIENT
  Age: 56 Year
  Sex: Female

DRUGS (3)
  1. ALPRAZOLAM [Suspect]
     Active Substance: ALPRAZOLAM
     Indication: Anxiety
     Dosage: UNIT DOSE: 0.25 MG , FREQUENCY TIME : 1 DAY, THERAPY END DATE : NASK
     Dates: start: 202009
  2. FLUOXETINE [Suspect]
     Active Substance: FLUOXETINE HYDROCHLORIDE
     Indication: Depression
     Dosage: BASE, UNIT DOSE: 20 MG , FREQUENCY TIME : 1 DAY, DURATION : 2 YEARS
     Dates: start: 202009, end: 20230113
  3. CYANOCOBALAMIN [Suspect]
     Active Substance: CYANOCOBALAMIN
     Indication: Pernicious anaemia
     Dosage: UNIT DOSE: 1 DF , FREQUENCY TIME : 1 MONTH

REACTIONS (3)
  - Pulmonary mass [Not Recovered/Not Resolved]
  - Pulmonary granuloma [Not Recovered/Not Resolved]
  - Lung opacity [Not Recovered/Not Resolved]

NARRATIVE: CASE EVENT DATE: 20211020
